FAERS Safety Report 25410779 (Version 1)
Quarter: 2025Q2

REPORT INFORMATION
  Report Type: Spontaneous
  Country: FR (occurrence: FR)
  Receive Date: 20250609
  Receipt Date: 20250609
  Transmission Date: 20250717
  Serious: Yes (Other)
  Sender: GALDERMA
  Company Number: None

PATIENT

DRUGS (1)
  1. DIFFERIN [Suspect]
     Active Substance: ADAPALENE
     Indication: Acne
     Route: 061
     Dates: start: 20241216, end: 20250127

REACTIONS (4)
  - Swelling of eyelid [Recovered/Resolved]
  - Eyelids pruritus [Recovered/Resolved]
  - Skin exfoliation [Recovered/Resolved]
  - Erythema of eyelid [Recovered/Resolved]

NARRATIVE: CASE EVENT DATE: 20250107
